FAERS Safety Report 9154234 (Version 1)
Quarter: 2013Q1

REPORT INFORMATION
  Report Type: Spontaneous
  Country: US (occurrence: None)
  Receive Date: 20130308
  Receipt Date: 20130308
  Transmission Date: 20140127
  Serious: No
  Sender: FDA-Public Use
  Company Number: None

PATIENT
  Sex: Male

DRUGS (2)
  1. INLYTA [Suspect]
     Route: 048
     Dates: start: 20130121
  2. INLYTA [Suspect]
     Route: 048

REACTIONS (1)
  - Vision blurred [None]
